FAERS Safety Report 7172811-3 (Version None)
Quarter: 2010Q4

REPORT INFORMATION
  Report Type: 
  Country: None (occurrence: None)
  Receive Date: 20101219
  Receipt Date: 20100214
  Transmission Date: 20110411
  Serious: No
  Sender: FDA-Public Use
  Company Number: US-AMGEN-KDL392821

PATIENT

DRUGS (2)
  1. ENBREL [Suspect]
     Indication: RHEUMATOID ARTHRITIS
     Dosage: 50 MG, QWK
     Route: 058
     Dates: start: 20041014
  2. SULFASALAZINE [Concomitant]
     Dosage: 500 MG, QD
     Route: 048

REACTIONS (3)
  - MALAISE [None]
  - RESPIRATORY TRACT CONGESTION [None]
  - SINUSITIS [None]
